FAERS Safety Report 16668071 (Version 1)
Quarter: 2019Q3

REPORT INFORMATION
  Report Type: Spontaneous
  Country: BR (occurrence: BR)
  Receive Date: 20190805
  Receipt Date: 20190805
  Transmission Date: 20191004
  Serious: Yes (Other)
  Sender: FDA-Public Use
  Company Number: BR-SA-2019SA204398

PATIENT
  Age: 37 Year
  Sex: Female
  Weight: 60 kg

DRUGS (10)
  1. SODIUM CHLORIDE 0.9% [Concomitant]
     Active Substance: SODIUM CHLORIDE
     Indication: CHEMOTHERAPY
     Dosage: 250 UNK, UNK
     Route: 042
     Dates: start: 20190705, end: 20190705
  2. GLUCOSE [Concomitant]
     Active Substance: DEXTROSE
     Dosage: 100 ML, UNK
  3. TAXOTERE [Suspect]
     Active Substance: DOCETAXEL
     Indication: LUNG CANCER METASTATIC
     Dosage: 120 ML, UNK
     Route: 042
     Dates: start: 20190705, end: 20190705
  4. SODIUM CHLORIDE 0.9% [Concomitant]
     Active Substance: SODIUM CHLORIDE
     Dosage: 500 ML, UNK
     Route: 065
     Dates: start: 20190705, end: 20190705
  5. CYRAMZA [Concomitant]
     Active Substance: RAMUCIRUMAB
     Indication: CHEMOTHERAPY
     Dosage: UNK UNK, UNK
     Route: 042
     Dates: start: 20190705, end: 20190705
  6. SODIUM CHLORIDE 0.9% [Concomitant]
     Active Substance: SODIUM CHLORIDE
     Dosage: 100 UNK
     Route: 065
     Dates: start: 20190705, end: 20190705
  7. DECADRON [Concomitant]
     Active Substance: DEXAMETHASONE
     Dosage: UNK UNK, UNK
     Route: 065
     Dates: start: 20190705, end: 20190705
  8. SODIUM CHLORIDE 0.9% [Concomitant]
     Active Substance: SODIUM CHLORIDE
     Dosage: 250 ML, UNK
     Route: 042
     Dates: start: 20190705, end: 20190705
  9. DIFENIDRIN [Concomitant]
     Active Substance: DIPHENHYDRAMINE
     Dosage: UNK UNK, UNK
     Route: 065
  10. NAUSEDRON [Concomitant]
     Active Substance: ONDANSETRON HYDROCHLORIDE
     Dosage: UNK UNK, UNK
     Route: 065
     Dates: start: 20190705, end: 20190705

REACTIONS (5)
  - Dyspnoea [Recovered/Resolved]
  - Oxygen saturation decreased [Unknown]
  - Rash erythematous [Recovered/Resolved]
  - Cyanosis [Recovered/Resolved]
  - Skin disorder [Recovered/Resolved]

NARRATIVE: CASE EVENT DATE: 20190705
